FAERS Safety Report 7713598-2 (Version None)
Quarter: 2011Q3

REPORT INFORMATION
  Report Type: 
  Country: None (occurrence: None)
  Receive Date: 20110826
  Receipt Date: 20110815
  Transmission Date: 20111222
  Serious: Yes (Hospitalization, Other)
  Sender: FDA-Public Use
  Company Number: DE-MYLANLABS-2011S1016896

PATIENT
  Age: 0 Year
  Sex: Male
  Weight: 3.07 kg

DRUGS (5)
  1. SERTRALINE HYDROCHLORIDE [Suspect]
  2. SERTRALINE HYDROCHLORIDE [Suspect]
     Dosage: 150 [MG/D ]/ FROM WEEK 11 REDUCTION TO 100MG/D
     Route: 064
     Dates: start: 20100208, end: 20101112
  3. THYROXIN [Concomitant]
     Indication: AUTOIMMUNE THYROIDITIS
     Dosage: 137.5 [?G/D ] / 150 [?G/D ]
     Route: 064
     Dates: start: 20100508, end: 20101112
  4. FOLIO [Concomitant]
     Indication: PROPHYLAXIS OF NEURAL TUBE DEFECT
     Dosage: 0.4 [MG/D ]
     Route: 064
     Dates: start: 20100208, end: 20100512
  5. LEVOTHYROXINE SODIUM [Concomitant]
     Indication: AUTOIMMUNE THYROIDITIS
     Dosage: 150 [?G/D ]/ SINCE 3 YEARS
     Route: 064
     Dates: start: 20100208, end: 20100507

REACTIONS (5)
  - NEONATAL RESPIRATORY ACIDOSIS [None]
  - NEONATAL RESPIRATORY DISTRESS SYNDROME [None]
  - BRADYCARDIA NEONATAL [None]
  - MATERNAL EXPOSURE DURING PREGNANCY [None]
  - TORTICOLLIS [None]
